FAERS Safety Report 18379670 (Version 1)
Quarter: 2020Q4

REPORT INFORMATION
  Report Type: Other
  Country: US (occurrence: US)
  Receive Date: 20201014
  Receipt Date: 20201014
  Transmission Date: 20210114
  Serious: Yes (Other)
  Sender: FDA-Public Use
  Company Number: US-ROCHE-2694033

PATIENT
  Age: 53 Year
  Sex: Male

DRUGS (3)
  1. VALPROIC ACID. [Suspect]
     Active Substance: VALPROIC ACID
     Indication: GLIOBLASTOMA
     Route: 048
  2. TEMSIROLIMUS. [Concomitant]
     Active Substance: TEMSIROLIMUS
     Route: 042
  3. BEVACIZUMAB. [Suspect]
     Active Substance: BEVACIZUMAB
     Indication: GLIOBLASTOMA
     Route: 042

REACTIONS (8)
  - Neutropenia [Recovered/Resolved]
  - Rash [Recovered/Resolved]
  - Renal failure [Recovered/Resolved]
  - Hypertension [Recovered/Resolved]
  - Proteinuria [Recovered/Resolved]
  - Thrombocytopenia [Recovered/Resolved]
  - Mucosal inflammation [Recovered/Resolved]
  - Neuropathy peripheral [Recovered/Resolved]
